FAERS Safety Report 13267453 (Version 1)
Quarter: 2017Q1

REPORT INFORMATION
  Report Type: Spontaneous
  Country: US (occurrence: US)
  Receive Date: 20170224
  Receipt Date: 20170224
  Transmission Date: 20170428
  Serious: Yes (Other)
  Sender: FDA-Public Use
  Company Number: US-ROCHE-1887593

PATIENT
  Sex: Male

DRUGS (1)
  1. XELODA [Suspect]
     Active Substance: CAPECITABINE
     Indication: PRODUCT USED FOR UNKNOWN INDICATION
     Dosage: TAKE ON DAY 1-14 OF CHEMOTHERAPY REGIMEN, TAKE TAKE 4 TABLETS
     Route: 048
     Dates: start: 20161116

REACTIONS (2)
  - Head injury [Not Recovered/Not Resolved]
  - Skin exfoliation [Unknown]
